FAERS Safety Report 7721901-2 (Version None)
Quarter: 2011Q3

REPORT INFORMATION
  Report Type: 
  Country: None (occurrence: None)
  Receive Date: 20110831
  Receipt Date: 20110826
  Transmission Date: 20111222
  Serious: Yes (Hospitalization)
  Sender: FDA-Public Use
  Company Number: CN-B.I. PHARMACEUTICALS,INC./RIDGEFIELD-2011-CS-00730CS

PATIENT
  Age: 80 Year
  Sex: Male
  Weight: 45 kg

DRUGS (1)
  1. MICARDIS [Suspect]
     Indication: ESSENTIAL HYPERTENSION
     Dosage: 80 MG
     Route: 048
     Dates: start: 20110802, end: 20110810

REACTIONS (2)
  - HEPATITIS E [None]
  - CHEST PAIN [None]
